FAERS Safety Report 16161325 (Version 2)
Quarter: 2020Q1

REPORT INFORMATION
  Report Type: Spontaneous
  Country: US (occurrence: US)
  Receive Date: 20190405
  Receipt Date: 20200330
  Transmission Date: 20200409
  Serious: No
  Sender: FDA-Public Use
  Company Number: US-AMGEN-USASP2019051176

PATIENT
  Age: 64 Year
  Sex: Female

DRUGS (1)
  1. PROLIA [Suspect]
     Active Substance: DENOSUMAB
     Indication: OSTEOPOROSIS POSTMENOPAUSAL
     Dosage: UNK
     Route: 065
     Dates: start: 2015

REACTIONS (4)
  - White blood cell count decreased [Not Recovered/Not Resolved]
  - Bunion operation [Not Recovered/Not Resolved]
  - Breast hyperplasia [Unknown]
  - Bone lesion excision [Not Recovered/Not Resolved]

NARRATIVE: CASE EVENT DATE: 201811
